FAERS Safety Report 8532883-8 (Version None)
Quarter: 2012Q3

REPORT INFORMATION
  Report Type: 
  Country: None (occurrence: None)
  Receive Date: 20120724
  Receipt Date: 20120713
  Transmission Date: 20120928
  Serious: Yes (Hospitalization)
  Sender: FDA-Public Use
  Company Number: NL-AMGEN-NLDSP2012044494

PATIENT
  Age: 56 Year
  Sex: Female

DRUGS (3)
  1. ENBREL [Suspect]
     Indication: RHEUMATOID ARTHRITIS
     Dosage: 50 MG, WEEKLY
     Dates: start: 20091001, end: 20110101
  2. PREDNISONE TAB [Concomitant]
     Dosage: UNK
  3. ENBREL [Suspect]
     Dosage: 25 MG, WEEKLY
     Dates: start: 20120601

REACTIONS (2)
  - METASTASES TO LYMPH NODES [None]
  - PANCREATIC CARCINOMA [None]
